FAERS Safety Report 9665426 (Version 1)
Quarter: 2013Q4

REPORT INFORMATION
  Report Type: Spontaneous
  Country: US (occurrence: None)
  Receive Date: 20131031
  Receipt Date: 20131031
  Transmission Date: 20140711
  Serious: No
  Sender: FDA-Public Use
  Company Number: None

PATIENT
  Age: 66 Year
  Sex: Female
  Weight: 60.78 kg

DRUGS (14)
  1. RECLAST [Suspect]
  2. ALPRAZOLAM [Concomitant]
  3. EVOXAC [Concomitant]
  4. SYNTHROID [Concomitant]
  5. PLAQUENIL [Concomitant]
  6. VIT D [Concomitant]
  7. PRAVACHOL [Concomitant]
  8. TRAMADOL [Concomitant]
  9. ASA [Concomitant]
  10. CALCIUM [Concomitant]
  11. PROTONIX [Concomitant]
  12. FOSINOPRIL [Concomitant]
  13. FISH OIL [Concomitant]
  14. CINNAMON BARK [Concomitant]

REACTIONS (5)
  - Renal failure [None]
  - Renal artery stenosis [None]
  - Gastrointestinal disorder [None]
  - Nephropathy [None]
  - Renal atrophy [None]
